FAERS Safety Report 6676660-1 (Version None)
Quarter: 2010Q2

REPORT INFORMATION
  Report Type: 
  Country: None (occurrence: None)
  Receive Date: 20100412
  Receipt Date: 20100329
  Transmission Date: 20101027
  Serious: Yes (Other)
  Sender: FDA-Public Use
  Company Number: GB-MYLANLABS-2010S1005214

PATIENT
  Age: 57 Year
  Sex: Female

DRUGS (6)
  1. CLOZAPINE [Suspect]
     Indication: SCHIZOPHRENIA
     Dosage: 12.5 MG AT NIGHT
     Route: 065
     Dates: start: 20071101
  2. CLOZAPINE [Suspect]
     Dosage: 12.5 MG IN MORNING AND NIGHT
     Route: 065
     Dates: start: 20071101
  3. CLOZAPINE [Suspect]
     Route: 065
     Dates: start: 20030101
  4. OLANZAPINE [Concomitant]
     Dosage: 10 MG AT NIGHT
     Route: 065
  5. VALPROIC ACID [Concomitant]
     Route: 065
  6. HALOPERIDOL [Concomitant]
     Indication: ACUTE PSYCHOSIS
     Dosage: WAS AVAILABLE
     Route: 030

REACTIONS (2)
  - RENAL FAILURE ACUTE [None]
  - TUBULOINTERSTITIAL NEPHRITIS [None]
